FAERS Safety Report 10042594 (Version 1)
Quarter: 2014Q1

REPORT INFORMATION
  Report Type: Spontaneous
  Country: US (occurrence: US)
  Receive Date: 20140327
  Receipt Date: 20140327
  Transmission Date: 20141002
  Serious: Yes (Death, Hospitalization)
  Sender: FDA-Public Use
  Company Number: US-TEVA-470592USA

PATIENT
  Age: 59 Year
  Sex: Female
  Weight: 60.38 kg

DRUGS (1)
  1. FENTORA [Suspect]
     Indication: LUNG CANCER METASTATIC
     Dosage: EVERY 4 HOURS
     Route: 002
     Dates: start: 20140307

REACTIONS (5)
  - Acute respiratory failure [Fatal]
  - Pneumonia [Unknown]
  - Hypotension [Unknown]
  - Sepsis [Unknown]
  - Chronic obstructive pulmonary disease [Unknown]
